FAERS Safety Report 13187465 (Version 2)
Quarter: 2017Q1

REPORT INFORMATION
  Report Type: Spontaneous
  Country: US (occurrence: US)
  Receive Date: 20170206
  Receipt Date: 20170213
  Transmission Date: 20170428
  Serious: No
  Sender: FDA-Public Use
  Company Number: US-ASTRAZENECA-2017SE12304

PATIENT
  Sex: Female
  Weight: 70.3 kg

DRUGS (4)
  1. PROLIA [Concomitant]
     Active Substance: DENOSUMAB
     Indication: OSTEOPOROSIS
     Dosage: TWICE A YEAR
     Dates: start: 201601
  2. SYMBICORT [Suspect]
     Active Substance: BUDESONIDE\FORMOTEROL FUMARATE DIHYDRATE
     Indication: BRONCHITIS CHRONIC
     Dosage: 160/4.5 UG, TWO PUFFS TWO TIMES A DAY
     Route: 055
     Dates: start: 201505
  3. LAMICTAL [Concomitant]
     Active Substance: LAMOTRIGINE
     Indication: COMPLEX PARTIAL SEIZURES
     Route: 048
     Dates: start: 1995
  4. CALCIUM [Concomitant]
     Active Substance: CALCIUM
     Dosage: OTC, 500 MG TWICE DAILY
     Route: 048
     Dates: start: 2002

REACTIONS (5)
  - Product quality issue [Unknown]
  - Intentional product misuse [Unknown]
  - Respiration abnormal [Unknown]
  - Off label use [Unknown]
  - Medication error [Unknown]
